FAERS Safety Report 5466559-0 (Version None)
Quarter: 2007Q3

REPORT INFORMATION
  Report Type: 
  Country: None (occurrence: None)
  Receive Date: 20070820
  Receipt Date: 20070611
  Transmission Date: 20080115
  Serious: No
  Sender: FDA-Public Use
  Company Number: WAES 0706USA02058

PATIENT
  Age: 48 Year
  Sex: Male

DRUGS (7)
  1. JANUVIA [Suspect]
     Indication: TYPE 2 DIABETES MELLITUS
     Dosage: PO
     Route: 048
  2. COREG [Concomitant]
  3. COZAAR [Concomitant]
  4. LIPITOR [Concomitant]
  5. HYDROCHLOROTHIAZIDE [Concomitant]
  6. MINODOXIL [Concomitant]
  7. VERAPAMIL [Concomitant]

REACTIONS (1)
  - WEIGHT INCREASED [None]
